FAERS Safety Report 11593249 (Version 1)
Quarter: 2015Q4

REPORT INFORMATION
  Report Type: Spontaneous
  Country: US (occurrence: US)
  Receive Date: 20151005
  Receipt Date: 20151005
  Transmission Date: 20160304
  Serious: No
  Sender: FDA-Public Use
  Company Number: US-TEVA-597011ACC

PATIENT
  Sex: Female
  Weight: 63.56 kg

DRUGS (4)
  1. FORADIL INHALER [Concomitant]
     Indication: ASTHMA
  2. QVAR INHALER [Concomitant]
     Indication: ASTHMA
  3. PROAIR HFA [Concomitant]
     Active Substance: ALBUTEROL SULFATE
     Indication: ASTHMA
  4. PARAGARD T 380A [Suspect]
     Active Substance: COPPER
     Indication: CONTRACEPTION
     Route: 015
     Dates: start: 201411, end: 201508

REACTIONS (2)
  - Discomfort [Unknown]
  - Device expulsion [Recovered/Resolved]
